FAERS Safety Report 7645362-7 (Version None)
Quarter: 2011Q3

REPORT INFORMATION
  Report Type: 
  Country: None (occurrence: None)
  Receive Date: 20110729
  Receipt Date: 20110721
  Transmission Date: 20111222
  Serious: Yes (Other)
  Sender: FDA-Public Use
  Company Number: US-BAYER-2011-032480

PATIENT
  Age: 55 Year
  Sex: Female
  Weight: 102.4 kg

DRUGS (5)
  1. MOTRIN [Concomitant]
     Dosage: 600 MG, QD
  2. LEVOTHYROXINE SODIUM [Concomitant]
     Dosage: 0.125 MG, UNK
  3. FERROUS SULFATE TAB [Concomitant]
     Dosage: UNK MG, UNK
  4. DROSPIRENONE AND ETHINYL ESTRADIOL [Suspect]
     Dosage: UNK
     Dates: start: 20090330, end: 20090427
  5. NEXIUM [Concomitant]
     Dosage: 40 MG, UNK

REACTIONS (5)
  - INJURY [None]
  - DEEP VEIN THROMBOSIS [None]
  - ANXIETY [None]
  - EMOTIONAL DISTRESS [None]
  - DEPRESSION [None]
